FAERS Safety Report 4423644-X (Version None)
Quarter: 2004Q3

REPORT INFORMATION
  Report Type: 
  Country: None (occurrence: None)
  Receive Date: 20040719
  Receipt Date: 20040322
  Transmission Date: 20050211
  Serious: Yes (Hospitalization)
  Sender: FDA-Public Use
  Company Number: A03200400926

PATIENT
  Age: 86 Year
  Sex: Male
  Weight: 88.4514 kg

DRUGS (2)
  1. UROXATRAL [Suspect]
     Indication: BENIGN PROSTATIC HYPERPLASIA
     Dosage: 10 MG OD; ORAL
     Route: 048
     Dates: start: 20040203, end: 20040309
  2. UROXATRAL [Suspect]
     Indication: URINARY RETENTION
     Dosage: 10 MG OD; ORAL
     Route: 048
     Dates: start: 20040203, end: 20040309

REACTIONS (1)
  - SYNCOPE [None]
